FAERS Safety Report 6168237-1 (Version None)
Quarter: 2009Q2

REPORT INFORMATION
  Report Type: 
  Country: None (occurrence: None)
  Receive Date: 20090423
  Receipt Date: 20090423
  Transmission Date: 20091009
  Serious: Yes (Other)
  Sender: FDA-Public Use
  Company Number: None

PATIENT
  Sex: Female

DRUGS (1)
  1. DIVALPROEX SODIUM [Suspect]
     Indication: BIPOLAR DISORDER
     Dosage: 250 MG QAM PO, 375 MG QHS PO
     Route: 048
     Dates: start: 20090227, end: 20090305

REACTIONS (3)
  - AGGRESSION [None]
  - PRODUCT SUBSTITUTION ISSUE [None]
  - RASH [None]
